FAERS Safety Report 5469402-9 (Version None)
Quarter: 2007Q3

REPORT INFORMATION
  Report Type: 
  Country: None (occurrence: None)
  Receive Date: 20070925
  Receipt Date: 20070925
  Transmission Date: 20080115
  Serious: Yes (Other)
  Sender: FDA-Public Use
  Company Number: None

PATIENT
  Age: 38 Year
  Sex: Female
  Weight: 67.1324 kg

DRUGS (1)
  1. ZOFRAN [Suspect]
     Indication: PREOPERATIVE CARE
     Dosage: STANDARD  IV BOLUS
     Route: 040

REACTIONS (2)
  - PRURITUS [None]
  - URTICARIA [None]
